FAERS Safety Report 6384267-9 (Version None)
Quarter: 2009Q4

REPORT INFORMATION
  Report Type: 
  Country: None (occurrence: None)
  Receive Date: 20091001
  Receipt Date: 20090922
  Transmission Date: 20100525
  Serious: Yes (Hospitalization, Other)
  Sender: FDA-Public Use
  Company Number: CA-PFIZER INC-2009272531

PATIENT
  Age: 70 Year

DRUGS (3)
  1. SUNITINIB MALATE [Suspect]
     Indication: RENAL CANCER
     Dosage: 50 MG, 1X/DAY
     Route: 048
     Dates: start: 20090421, end: 20090708
  2. ATACAND [Concomitant]
     Indication: HYPERTENSION
     Dosage: 16-12.5 MG, 1X/DAY
  3. FOSAVANCE [Concomitant]
     Indication: OSTEOPOROSIS
     Dosage: 1 UNK, WEEKLY
     Route: 048

REACTIONS (1)
  - LEFT VENTRICULAR DYSFUNCTION [None]
